FAERS Safety Report 4867647-X (Version None)
Quarter: 2005Q4

REPORT INFORMATION
  Report Type: 
  Country: None (occurrence: None)
  Receive Date: 20051222
  Receipt Date: 20051222
  Transmission Date: 20060501
  Serious: No
  Sender: FDA-Public Use
  Company Number: None

PATIENT
  Age: 57 Year
  Sex: Male
  Weight: 129 kg

DRUGS (8)
  1. LITHIUM     450 MG SA [Suspect]
     Indication: SCHIZOPHRENIA
     Dosage: 900 MG   QHS   PO
     Route: 048
     Dates: start: 20030214, end: 20050802
  2. ASPIRIN [Concomitant]
  3. BENZTROPINE MESYLATE [Concomitant]
  4. DILTIAZEM HCL [Concomitant]
  5. HALOPERIDOL [Concomitant]
  6. METFORMIN [Concomitant]
  7. QUETIAPINE FUMARATE [Concomitant]
  8. MULTI-VITAMIN [Concomitant]

REACTIONS (6)
  - BUNDLE BRANCH BLOCK RIGHT [None]
  - CONFUSIONAL STATE [None]
  - DIZZINESS [None]
  - ELECTROCARDIOGRAM ST-T CHANGE [None]
  - RENAL FAILURE ACUTE [None]
  - VOMITING [None]
